FAERS Safety Report 12198647 (Version 1)
Quarter: 2016Q1

REPORT INFORMATION
  Report Type: Spontaneous
  Country: US (occurrence: None)
  Receive Date: 20160321
  Receipt Date: 20160321
  Transmission Date: 20160526
  Serious: Yes (Hospitalization)
  Sender: FDA-Public Use
  Company Number: None

PATIENT
  Age: 67 Year
  Sex: Female

DRUGS (3)
  1. IBRANCE [Suspect]
     Active Substance: PALBOCICLIB
     Indication: METASTASES TO BONE
     Dosage: 125MG POX21 DAYS
     Route: 048
     Dates: start: 20160224, end: 20160313
  2. IBRANCE [Suspect]
     Active Substance: PALBOCICLIB
     Indication: BREAST CANCER
     Dosage: 125MG POX21 DAYS
     Route: 048
     Dates: start: 20160224, end: 20160313
  3. FASLODEX [Concomitant]
     Active Substance: FULVESTRANT

REACTIONS (1)
  - Pneumonia [None]

NARRATIVE: CASE EVENT DATE: 20160313
